FAERS Safety Report 18519193 (Version 1)
Quarter: 2020Q4

REPORT INFORMATION
  Report Type: Spontaneous
  Country: BR (occurrence: BR)
  Receive Date: 20201118
  Receipt Date: 20201118
  Transmission Date: 20210114
  Serious: Yes (Other)
  Sender: FDA-Public Use
  Company Number: BR-PFIZER INC-2020449057

PATIENT
  Age: 86 Year
  Sex: Female

DRUGS (3)
  1. LIPITOR [Suspect]
     Active Substance: ATORVASTATIN CALCIUM
     Dosage: UNK
     Dates: start: 2012
  2. HYLO COMOD [Concomitant]
     Active Substance: HYALURONATE SODIUM
     Dosage: UNK
  3. HYLO GEL [Concomitant]
     Dosage: UNK

REACTIONS (1)
  - Hyper IgE syndrome [Unknown]

NARRATIVE: CASE EVENT DATE: 2015
